FAERS Safety Report 21227694 (Version 1)
Quarter: 2022Q3

REPORT INFORMATION
  Report Type: Spontaneous
  Country: US (occurrence: US)
  Receive Date: 20220818
  Receipt Date: 20220818
  Transmission Date: 20221027
  Serious: Yes (Other)
  Sender: FDA-Public Use
  Company Number: US-GLENMARK PHARMACEUTICALS-2022GMK072401

PATIENT

DRUGS (9)
  1. ZONISAMIDE [Suspect]
     Active Substance: ZONISAMIDE
     Indication: Seizure
     Dosage: 200 MG NIGHT AND 100 MG AT MORNING
     Route: 048
     Dates: start: 201907
  2. ZONISAMIDE [Suspect]
     Active Substance: ZONISAMIDE
     Indication: Seizure
     Dosage: 50 MILLIGRAM, AM
     Route: 048
     Dates: start: 201907
  3. HYDROXYZINE [Concomitant]
     Active Substance: HYDROXYZINE HYDROCHLORIDE
     Indication: Sleep disorder
     Dosage: 2 DOSAGE FORM, HS
     Route: 048
     Dates: start: 202203
  4. HYDROXYZINE [Concomitant]
     Active Substance: HYDROXYZINE HYDROCHLORIDE
     Indication: Anxiety
  5. DULOXETINE [Concomitant]
     Active Substance: DULOXETINE
     Indication: Anxiety
     Dosage: 30 MILLIGRAM
     Route: 048
     Dates: start: 202203
  6. RIZATRIPTAN [Concomitant]
     Active Substance: RIZATRIPTAN
     Indication: Migraine
     Dosage: 5 MILLIGRAM, OD
     Route: 048
     Dates: start: 202203
  7. SERTRALINE [Concomitant]
     Active Substance: SERTRALINE HYDROCHLORIDE
     Indication: Depression
     Dosage: 200 MILLIGRAM, OD
     Route: 048
     Dates: start: 2014
  8. PROMETHAZINE [Concomitant]
     Active Substance: PROMETHAZINE HYDROCHLORIDE
     Indication: Nausea
     Dosage: 25 MILLIGRAM, OD
     Route: 048
     Dates: start: 2016
  9. CORTISONE [Concomitant]
     Active Substance: CORTISONE
     Indication: Blood pressure management
     Dosage: UNK UNK, OD
     Route: 048

REACTIONS (5)
  - Seizure [Unknown]
  - Stress [Unknown]
  - Product dose omission issue [Unknown]
  - Hypotension [Unknown]
  - Urinary tract infection [Unknown]
